FAERS Safety Report 8395518-3 (Version None)
Quarter: 2012Q2

REPORT INFORMATION
  Report Type: 
  Country: None (occurrence: None)
  Receive Date: 20120530
  Receipt Date: 20110602
  Transmission Date: 20120825
  Serious: No
  Sender: FDA-Public Use
  Company Number: US-GLAXOSMITHKLINE-A0930064A

PATIENT
  Age: 3 Year
  Sex: Male
  Weight: 18.4 kg

DRUGS (4)
  1. VENTOLIN [Suspect]
     Indication: ASTHMA
     Dosage: 2PUFF AS REQUIRED
     Route: 055
     Dates: start: 20110601, end: 20110601
  2. QVAR 40 [Concomitant]
  3. PREVACID [Concomitant]
  4. CLARITIN [Concomitant]

REACTIONS (1)
  - URTICARIA [None]
